FAERS Safety Report 7890119-5 (Version None)
Quarter: 2011Q4

REPORT INFORMATION
  Report Type: 
  Country: None (occurrence: None)
  Receive Date: 20111103
  Receipt Date: 20111019
  Transmission Date: 20120403
  Serious: Yes (Hospitalization, Other)
  Sender: FDA-Public Use
  Company Number: US-JUTA GMBH-2011-16985

PATIENT
  Sex: Female

DRUGS (2)
  1. ALENDRONATE SODIUM [Suspect]
     Indication: OSTEOPENIA
     Dosage: 70 MG/ WEEKLY
     Route: 048
     Dates: start: 20081001, end: 20100201
  2. FOSAMAX [Suspect]
     Indication: OSTEOPENIA
     Dosage: 70 MG/ WEEKLY
     Route: 048
     Dates: start: 20030901, end: 20081001

REACTIONS (17)
  - GAIT DISTURBANCE [None]
  - FEMUR FRACTURE [None]
  - PAIN [None]
  - JOINT RANGE OF MOTION DECREASED [None]
  - DEEP VEIN THROMBOSIS [None]
  - ORTHOPEDIC PROCEDURE [None]
  - BONE DISORDER [None]
  - ACTIVITIES OF DAILY LIVING IMPAIRED [None]
  - FALL [None]
  - OESOPHAGITIS [None]
  - INCISION SITE PAIN [None]
  - DEFORMITY [None]
  - LOW TURNOVER OSTEOPATHY [None]
  - ASTHENIA [None]
  - SCAR [None]
  - PAIN IN EXTREMITY [None]
  - TENDONITIS [None]
